FAERS Safety Report 4449685-4 (Version None)
Quarter: 2004Q3

REPORT INFORMATION
  Report Type: 
  Country: None (occurrence: None)
  Receive Date: 20040913
  Receipt Date: 20040830
  Transmission Date: 20050211
  Serious: Yes (Hospitalization)
  Sender: FDA-Public Use
  Company Number: HQWYE665730AUG04

PATIENT
  Age: 51 Year
  Sex: Female

DRUGS (16)
  1. EFFEXOR XR [Suspect]
     Indication: MAJOR DEPRESSION
     Dosage: 300 MG 1X PER 1 DAY, ORAL
     Route: 048
     Dates: start: 20020911, end: 20040824
  2. TRIAMTERENE (TRIAMTERNE) [Concomitant]
  3. ALBUTEROL [Concomitant]
  4. NEXIUM [Concomitant]
  5. ASPIRIN [Concomitant]
  6. LISINOPRILL (LISINOPRIL) [Concomitant]
  7. SONATA [Concomitant]
  8. SEROQUEL [Concomitant]
  9. BENADRYL [Concomitant]
  10. TYLENOL PM (DIPHENHYDRAMINE/PARACETAMOL) [Concomitant]
  11. ASPIRIN [Concomitant]
  12. HYDROCHLOROTHIAZIDE [Concomitant]
  13. GARLIC (GARLIC) [Concomitant]
  14. VITAMIN C (ASCORBIC ACID) [Concomitant]
  15. VITAMIN E [Concomitant]
  16. CALCIUM (CALCIUM) [Concomitant]

REACTIONS (20)
  - ANXIETY [None]
  - BIPOLAR DISORDER [None]
  - CONDITION AGGRAVATED [None]
  - DEPRESSIVE SYMPTOM [None]
  - DYSPHORIA [None]
  - FAMILY STRESS [None]
  - FEELING ABNORMAL [None]
  - FEELING OF DESPAIR [None]
  - HALLUCINATION [None]
  - HYPERVENTILATION [None]
  - JOB DISSATISFACTION [None]
  - MAJOR DEPRESSION [None]
  - OBSESSIVE THOUGHTS [None]
  - PSYCHIATRIC SYMPTOM [None]
  - PSYCHOTIC DISORDER [None]
  - SELF-INJURIOUS IDEATION [None]
  - STRESS SYMPTOMS [None]
  - SUICIDAL IDEATION [None]
  - TEARFULNESS [None]
  - THINKING ABNORMAL [None]
